FAERS Safety Report 4462326-5 (Version None)
Quarter: 2004Q3

REPORT INFORMATION
  Report Type: 
  Country: None (occurrence: None)
  Receive Date: 20040924
  Receipt Date: 20040915
  Transmission Date: 20050211
  Serious: Yes (Hospitalization)
  Sender: FDA-Public Use
  Company Number: 0400029EN0020P

PATIENT
  Age: 7 Year
  Sex: Male
  Weight: 29 kg

DRUGS (5)
  1. ONCASPAR [Suspect]
     Indication: ACUTE LYMPHOCYTIC LEUKAEMIA
     Dosage: 2580 IU IM
     Route: 030
     Dates: start: 20040706, end: 20040803
  2. VINCRISTINE [Concomitant]
  3. ARA-C [Concomitant]
  4. 6-MP [Concomitant]
  5. SEPTRA [Concomitant]

REACTIONS (7)
  - ABDOMINAL PAIN [None]
  - BLOOD BILIRUBIN INCREASED [None]
  - HEPATIC ENZYME INCREASED [None]
  - NAUSEA [None]
  - NEUTROPENIA [None]
  - PYREXIA [None]
  - VOMITING [None]
